FAERS Safety Report 7161240-4 (Version None)
Quarter: 2010Q4

REPORT INFORMATION
  Report Type: 
  Country: None (occurrence: None)
  Receive Date: 20101215
  Receipt Date: 20101202
  Transmission Date: 20110411
  Serious: Yes (Disabling, Other)
  Sender: FDA-Public Use
  Company Number: US-ELI_LILLY_AND_COMPANY-US201012000848

PATIENT
  Sex: Male

DRUGS (14)
  1. GEMZAR [Suspect]
     Indication: MESOTHELIOMA
  2. ALIMTA [Suspect]
     Indication: MESOTHELIOMA
  3. SIMVASTATIN [Concomitant]
  4. DILTIAZEM [Concomitant]
  5. OMEPRAZOLE [Concomitant]
  6. ASPIRIN [Concomitant]
  7. MULTI-VITAMIN [Concomitant]
  8. FISH OIL [Concomitant]
  9. LEVOTHYROXINE [Concomitant]
  10. GARLIC [Concomitant]
  11. DULCOLAX [Concomitant]
  12. HYDROCODONE [Concomitant]
  13. SENOKOT [Concomitant]
  14. ZOLPIDEM [Concomitant]

REACTIONS (7)
  - ARTERITIS [None]
  - BLINDNESS [None]
  - OPTIC DISC HAEMORRHAGE [None]
  - OPTIC ISCHAEMIC NEUROPATHY [None]
  - PAPILLOEDEMA [None]
  - PUPILLARY REFLEX IMPAIRED [None]
  - RED BLOOD CELL SEDIMENTATION RATE INCREASED [None]
